FAERS Safety Report 9017581 (Version 4)
Quarter: 2013Q3

REPORT INFORMATION
  Report Type: Spontaneous
  Country: US (occurrence: US)
  Receive Date: 20130117
  Receipt Date: 20130821
  Transmission Date: 20140515
  Serious: Yes (Hospitalization, Other)
  Sender: FDA-Public Use
  Company Number: US-009507513-1301USA007542

PATIENT
  Sex: Female

DRUGS (13)
  1. FOSAMAX [Suspect]
     Indication: OSTEOPENIA
     Dosage: 70 MG, QW
     Route: 048
     Dates: start: 1995
  2. FOSAMAX [Suspect]
     Dosage: UNK
     Route: 048
     Dates: start: 2009
  3. FOSAMAX [Suspect]
     Dosage: 10 MG, QD
     Route: 048
     Dates: start: 1995
  4. ALENDRONATE SODIUM [Suspect]
     Indication: OSTEOPOROSIS
     Dosage: UNK
     Route: 048
     Dates: start: 2005, end: 2008
  5. ALENDRONATE SODIUM [Suspect]
     Indication: OSTEOPENIA
     Dosage: 70 MG, QW
     Dates: start: 200809
  6. PREDNISONE [Concomitant]
     Indication: RHEUMATOID ARTHRITIS
     Dosage: UNK
     Dates: start: 1974
  7. VERELAN [Concomitant]
     Indication: HYPERTENSION
     Dosage: 300 MG, UNK
     Dates: start: 1997
  8. CELEBREX [Concomitant]
     Indication: RHEUMATOID ARTHRITIS
     Dosage: 200 MG, BID
     Dates: start: 2000
  9. POTASSIUM CHLORIDE [Concomitant]
     Indication: HYPERTENSION
     Dosage: UNK
     Dates: start: 1997
  10. METHOTREXATE [Concomitant]
     Indication: RHEUMATOID ARTHRITIS
     Dosage: UNK
     Dates: start: 1986, end: 2001
  11. LOZOL [Concomitant]
     Indication: HYPERTENSION
     Dosage: 1.25 MG, QD
     Dates: start: 1996
  12. VERAPAMIL HYDROCHLORIDE [Concomitant]
     Indication: HYPERTENSION
     Dosage: UNK
  13. CITRACAL [Concomitant]
     Dosage: UNK
     Dates: start: 1994

REACTIONS (32)
  - Closed fracture manipulation [Unknown]
  - Femur fracture [Unknown]
  - Open reduction of fracture [Unknown]
  - Internal fixation of fracture [Unknown]
  - Internal fixation of fracture [Unknown]
  - Pulmonary embolism [Unknown]
  - Pulmonary embolism [Unknown]
  - Bone graft [Unknown]
  - Cholecystectomy [Unknown]
  - Anaemia postoperative [Unknown]
  - Femur fracture [Unknown]
  - Fracture nonunion [Not Recovered/Not Resolved]
  - Fracture nonunion [Unknown]
  - Device failure [Not Recovered/Not Resolved]
  - Foot fracture [Recovered/Resolved]
  - Foot fracture [Recovered/Resolved]
  - Foot fracture [Recovered/Resolved]
  - Hypothyroidism [Unknown]
  - Vitamin D deficiency [Unknown]
  - Effusion [Unknown]
  - Blood potassium decreased [Unknown]
  - Lower urinary tract symptoms [Unknown]
  - Diverticulitis [Unknown]
  - Fibrocystic breast disease [Unknown]
  - Hypokalaemia [Unknown]
  - Hypomagnesaemia [Unknown]
  - Arthropathy [Unknown]
  - Atrial septal defect [Unknown]
  - Hypokalaemia [Unknown]
  - Nausea [Unknown]
  - Gastrooesophageal reflux disease [Unknown]
  - Back pain [Not Recovered/Not Resolved]
